FAERS Safety Report 7415908-2 (Version None)
Quarter: 2011Q2

REPORT INFORMATION
  Report Type: 
  Country: None (occurrence: None)
  Receive Date: 20110414
  Receipt Date: 20110331
  Transmission Date: 20111010
  Serious: Yes (Other)
  Sender: FDA-Public Use
  Company Number: CA-JNJFOC-20110401295

PATIENT
  Sex: Male
  Weight: 79.5 kg

DRUGS (8)
  1. METFORMIN [Concomitant]
  2. BENADRYL [Concomitant]
     Indication: PREMEDICATION
  3. JANUVIA [Concomitant]
  4. REMICADE [Suspect]
     Dosage: 3RD INFUSION LOADING
     Route: 042
  5. ISONIAZID [Concomitant]
  6. PYRIDOXINE [Concomitant]
  7. REMICADE [Suspect]
     Indication: PSORIATIC ARTHROPATHY
     Dosage: 2ND INFUSION LOADING
     Route: 042
  8. REMICADE [Suspect]
     Dosage: 1ST INFUSION LOADING
     Route: 042

REACTIONS (9)
  - ERYTHEMA [None]
  - HYPOTENSION [None]
  - HYPERHIDROSIS [None]
  - TACHYCARDIA [None]
  - URTICARIA [None]
  - SYNCOPE [None]
  - HYPERTENSION [None]
  - INFUSION RELATED REACTION [None]
  - NAUSEA [None]
